FAERS Safety Report 7797554-4 (Version None)
Quarter: 2011Q4

REPORT INFORMATION
  Report Type: 
  Country: None (occurrence: None)
  Receive Date: 20111005
  Receipt Date: 20110928
  Transmission Date: 20120403
  Serious: Yes (Hospitalization, Disabling)
  Sender: FDA-Public Use
  Company Number: US-UCBSA-041254

PATIENT
  Sex: Female
  Weight: 63.64 kg

DRUGS (7)
  1. ESTRACE [Concomitant]
     Route: 048
  2. PHENYTOIN [Concomitant]
     Dosage: AT BED TIME
     Route: 048
  3. SYNTHROID [Concomitant]
     Route: 048
  4. ACTOS [Concomitant]
  5. SPIRONOLACTONE [Concomitant]
     Route: 048
  6. PROVERA [Concomitant]
     Route: 048
  7. VIMPAT [Suspect]
     Indication: CONVULSION
     Route: 048
     Dates: start: 20101025

REACTIONS (2)
  - THROMBOSIS [None]
  - MUSCLE SPASMS [None]
